FAERS Safety Report 6761442-2 (Version None)
Quarter: 2010Q2

REPORT INFORMATION
  Report Type: 
  Country: None (occurrence: None)
  Receive Date: 20100608
  Receipt Date: 20100603
  Transmission Date: 20101027
  Serious: Yes (Hospitalization)
  Sender: FDA-Public Use
  Company Number: US-ROCHE-706956

PATIENT
  Age: 68 Year
  Sex: Female

DRUGS (11)
  1. TRASTUZUMAB [Suspect]
     Indication: BREAST CANCER
     Route: 042
     Dates: start: 20100224, end: 20100224
  2. NEULASTA [Suspect]
     Indication: CHEMOTHERAPY
     Route: 065
     Dates: start: 20100225
  3. DOCETAXEL [Suspect]
     Indication: BREAST CANCER
     Route: 042
     Dates: start: 20100224, end: 20100224
  4. LORAZEPAM [Concomitant]
  5. DOXAZOSIN MESILATE [Concomitant]
  6. RAMIPRIL [Concomitant]
  7. MONTELUKAST [Concomitant]
  8. BACLOFEN [Concomitant]
  9. METFORMIN HCL [Concomitant]
  10. NITROFURANTOIN [Concomitant]
  11. VITAMIN TAB [Concomitant]
     Dosage: DRUG: VITAMINS

REACTIONS (7)
  - ASTHENIA [None]
  - BLOOD POTASSIUM DECREASED [None]
  - DIARRHOEA [None]
  - HAEMOGLOBIN DECREASED [None]
  - MALAISE [None]
  - OEDEMA PERIPHERAL [None]
  - PALMAR-PLANTAR ERYTHRODYSAESTHESIA SYNDROME [None]
